FAERS Safety Report 22219561 (Version 1)
Quarter: 2023Q2

REPORT INFORMATION
  Report Type: Spontaneous
  Country: US (occurrence: None)
  Receive Date: 20230414
  Receipt Date: 20230414
  Transmission Date: 20230722
  Serious: Yes (Hospitalization)
  Sender: FDA-Public Use
  Company Number: None

PATIENT
  Sex: Male

DRUGS (1)
  1. NIVESTYM [Suspect]
     Active Substance: FILGRASTIM-AAFI
     Indication: Illness
     Dosage: FREQUENCY : DAILY;?
     Route: 058
     Dates: start: 20230323

REACTIONS (3)
  - Nasal congestion [None]
  - Cough [None]
  - Pyrexia [None]
